FAERS Safety Report 6931696-8 (Version None)
Quarter: 2010Q3

REPORT INFORMATION
  Report Type: 
  Country: None (occurrence: None)
  Receive Date: 20100819
  Receipt Date: 20100812
  Transmission Date: 20110219
  Serious: Yes (Other)
  Sender: FDA-Public Use
  Company Number: US-PFIZER INC-2010101630

PATIENT
  Sex: Male

DRUGS (1)
  1. CHANTIX [Suspect]
     Dosage: UNK
     Dates: start: 20070505

REACTIONS (4)
  - AFFECT LABILITY [None]
  - DEPRESSION [None]
  - INSOMNIA [None]
  - MENTAL STATUS CHANGES [None]
